FAERS Safety Report 5441937-4 (Version None)
Quarter: 2007Q3

REPORT INFORMATION
  Report Type: 
  Country: None (occurrence: None)
  Receive Date: 20070904
  Receipt Date: 20070830
  Transmission Date: 20080115
  Serious: Yes (Other)
  Sender: FDA-Public Use
  Company Number: A0676485A

PATIENT
  Age: 4 Year
  Sex: Male
  Weight: 17.6 kg

DRUGS (4)
  1. CEFUROXIME [Suspect]
     Indication: PNEUMONIA
     Dosage: 5ML TWICE PER DAY
     Route: 048
     Dates: start: 20070821
  2. BEROTEC [Concomitant]
     Dates: start: 20070821
  3. PREDSIM [Concomitant]
     Dosage: 6ML PER DAY
     Dates: start: 20070821
  4. AMBROXOL [Concomitant]
     Dates: start: 20070822

REACTIONS (5)
  - AGGRESSION [None]
  - DARK CIRCLES UNDER EYES [None]
  - DRUG ADMINISTRATION ERROR [None]
  - FATIGUE [None]
  - PHARMACEUTICAL PRODUCT COMPLAINT [None]
